FAERS Safety Report 8923251 (Version 1)
Quarter: 2012Q4

REPORT INFORMATION
  Report Type: 
  Country: US (occurrence: US)
  Receive Date: 20121123
  Receipt Date: 20121123
  Transmission Date: 20130627
  Serious: No
  Sender: FDA-Public Use
  Company Number: US-JNJFOC-20121007068

PATIENT
  Age: 21 None
  Sex: Male

DRUGS (1)
  1. INVEGA SUSTENNA [Suspect]
     Indication: SCHIZOPHRENIA
     Route: 030
     Dates: start: 20121003

REACTIONS (5)
  - Paranoia [Unknown]
  - Agitation [Unknown]
  - Incorrect dose administered [Unknown]
  - Drug administered at inappropriate site [Unknown]
  - Drug prescribing error [Unknown]
